FAERS Safety Report 22156565 (Version 1)
Quarter: 2023Q1

REPORT INFORMATION
  Report Type: Spontaneous
  Country: ES (occurrence: ES)
  Receive Date: 20230330
  Receipt Date: 20230330
  Transmission Date: 20230417
  Serious: Yes (Hospitalization)
  Sender: FDA-Public Use
  Company Number: None

PATIENT
  Age: 16 Year
  Sex: Female
  Weight: 55 kg

DRUGS (4)
  1. PREDNISONE [Suspect]
     Active Substance: PREDNISONE
     Indication: Precursor B-lymphoblastic lymphoma stage IV
     Dosage: UNK
     Route: 065
     Dates: start: 20170321, end: 20170331
  2. ASPARAGINASE [Suspect]
     Active Substance: ASPARAGINASE
     Indication: Precursor B-lymphoblastic lymphoma stage IV
     Dosage: UNK
     Route: 065
     Dates: start: 20170321, end: 20170330
  3. DAUNORUBICIN [Suspect]
     Active Substance: DAUNORUBICIN
     Indication: Precursor B-lymphoblastic lymphoma stage IV
     Dosage: UNK
     Route: 065
     Dates: start: 20170315, end: 20170407
  4. VINCRISTINE [Suspect]
     Active Substance: VINCRISTINE
     Indication: Precursor B-lymphoblastic lymphoma stage IV
     Dosage: 2 MG EACH ADMINISTRATION
     Route: 065
     Dates: start: 20170315, end: 20170407

REACTIONS (3)
  - Hyperammonaemia [Recovered/Resolved]
  - Syncope [Recovering/Resolving]
  - Hyperbilirubinaemia [Recovered/Resolved]

NARRATIVE: CASE EVENT DATE: 20170403
